FAERS Safety Report 13734314 (Version 2)
Quarter: 2017Q3

REPORT INFORMATION
  Report Type: Spontaneous
  Country: FR (occurrence: FR)
  Receive Date: 20170709
  Receipt Date: 20170801
  Transmission Date: 20171127
  Serious: Yes (Other)
  Sender: FDA-Public Use
  Company Number: FR-009507513-1706FRA010348

PATIENT
  Age: 21 Year
  Sex: Female

DRUGS (2)
  1. ENGERIX-B [Concomitant]
     Active Substance: HEPATITIS B VIRUS SUBTYPE ADW2 HBSAG SURFACE PROTEIN ANTIGEN
     Indication: PROPHYLAXIS
     Dosage: 1DF (20 MICRO-G/ML), QD
     Dates: start: 20161220, end: 20161220
  2. NEXPLANON [Suspect]
     Active Substance: ETONOGESTREL
     Indication: CONTRACEPTION
     Dosage: 0.0005 (1 DF, 1 IN 5 YEARS)
     Route: 058
     Dates: start: 20150924, end: 20170515

REACTIONS (3)
  - Breast pain [Recovering/Resolving]
  - Vaginal haemorrhage [Recovering/Resolving]
  - Skin disorder [Recovering/Resolving]

NARRATIVE: CASE EVENT DATE: 201703
